FAERS Safety Report 5663208-3 (Version None)
Quarter: 2008Q1

REPORT INFORMATION
  Report Type: 
  Country: None (occurrence: None)
  Receive Date: 20080311
  Receipt Date: 20080311
  Transmission Date: 20080703
  Serious: Yes (Other)
  Sender: FDA-Public Use
  Company Number: None

PATIENT
  Age: 54 Year
  Weight: 81.6475 kg

DRUGS (2)
  1. MIRTAZAPINE [Suspect]
     Indication: ANXIETY
     Dosage: 30MG 1XDAY PO
     Route: 048
     Dates: start: 20080120, end: 20080310
  2. MIRTAZAPINE [Suspect]
     Indication: DEPRESSION
     Dosage: 30MG 1XDAY PO
     Route: 048
     Dates: start: 20080120, end: 20080310

REACTIONS (3)
  - ADVERSE DRUG REACTION [None]
  - EJACULATION FAILURE [None]
  - SEXUAL INHIBITION [None]
